FAERS Safety Report 21380992 (Version 1)
Quarter: 2022Q3

REPORT INFORMATION
  Report Type: Spontaneous
  Country: ES (occurrence: ES)
  Receive Date: 20220927
  Receipt Date: 20220927
  Transmission Date: 20221027
  Serious: Yes (Other)
  Sender: FDA-Public Use
  Company Number: ES-PFIZER INC-202201162976

PATIENT
  Age: 62 Year
  Sex: Male

DRUGS (4)
  1. DOXORUBICIN HYDROCHLORIDE [Suspect]
     Active Substance: DOXORUBICIN HYDROCHLORIDE
     Indication: Anaplastic large cell lymphoma T- and null-cell types stage IV
     Dosage: UNK UNK, CYCLIC
     Dates: start: 202109
  2. BRENTUXIMAB VEDOTIN [Suspect]
     Active Substance: BRENTUXIMAB VEDOTIN
     Indication: Anaplastic large cell lymphoma T- and null-cell types stage IV
     Dosage: UNK UNK, CYCLIC
     Dates: start: 202109
  3. CYCLOPHOSPHAMIDE [Suspect]
     Active Substance: CYCLOPHOSPHAMIDE
     Indication: Anaplastic large cell lymphoma T- and null-cell types stage IV
     Dosage: UNK UNK, CYCLIC
     Dates: start: 202109
  4. PREDNISONE [Suspect]
     Active Substance: PREDNISONE
     Indication: Anaplastic large cell lymphoma T- and null-cell types stage IV
     Dosage: UNK UNK, CYCLIC
     Dates: start: 202109

REACTIONS (1)
  - Lymphomatoid papulosis [Recovered/Resolved]
